FAERS Safety Report 8155244-2 (Version None)
Quarter: 2012Q1

REPORT INFORMATION
  Report Type: 
  Country: None (occurrence: None)
  Receive Date: 20120222
  Receipt Date: 20120214
  Transmission Date: 20120608
  Serious: Yes (Hospitalization)
  Sender: FDA-Public Use
  Company Number: US-BIOGENIDEC-2011BI006971

PATIENT
  Sex: Male

DRUGS (3)
  1. TYSABRI [Suspect]
     Indication: MULTIPLE SCLEROSIS
     Route: 042
     Dates: start: 20101230
  2. VITAMINS (NOS) [Concomitant]
     Indication: MULTIPLE SCLEROSIS
  3. DEPRESSION MEDICATION (NOS) [Concomitant]

REACTIONS (8)
  - SUICIDAL BEHAVIOUR [None]
  - PAIN [None]
  - BALANCE DISORDER [None]
  - DEPRESSION [None]
  - HYPOAESTHESIA [None]
  - ABDOMINAL PAIN UPPER [None]
  - ASTHENIA [None]
  - BONE PAIN [None]
